FAERS Safety Report 14461816 (Version 2)
Quarter: 2018Q1

REPORT INFORMATION
  Report Type: Report from Study
  Country: US (occurrence: US)
  Receive Date: 20180130
  Receipt Date: 20180205
  Transmission Date: 20180509
  Serious: Yes (Hospitalization, Other)
  Sender: FDA-Public Use
  Company Number: US-009507513-1711USA006559

PATIENT
  Age: 27 Year
  Sex: Female
  Weight: 89.8 kg

DRUGS (3)
  1. IMPLANON [Suspect]
     Active Substance: ETONOGESTREL
     Indication: CONTRACEPTION
     Dosage: ONE ROD EVERY THREE YEARS, LEFT UPPER ARM, DOSE REPORTED AS 68MG
     Route: 059
     Dates: start: 20150622, end: 20171206
  2. SINGULAIR [Concomitant]
     Active Substance: MONTELUKAST SODIUM
  3. ADDERALL [Concomitant]
     Active Substance: AMPHETAMINE ASPARTATE\AMPHETAMINE SULFATE\DEXTROAMPHETAMINE SACCHARATE\DEXTROAMPHETAMINE SULFATE
     Indication: ATTENTION DEFICIT/HYPERACTIVITY DISORDER

REACTIONS (7)
  - Complication of device removal [Recovered/Resolved with Sequelae]
  - General anaesthesia [Unknown]
  - Menstruation irregular [Not Recovered/Not Resolved]
  - Device dislocation [Recovered/Resolved with Sequelae]
  - Complication associated with device [Recovered/Resolved with Sequelae]
  - Device difficult to use [Recovered/Resolved with Sequelae]
  - Device deployment issue [Recovered/Resolved with Sequelae]

NARRATIVE: CASE EVENT DATE: 20171030
